FAERS Safety Report 19057538 (Version 3)
Quarter: 2022Q2

REPORT INFORMATION
  Report Type: Spontaneous
  Country: JP (occurrence: JP)
  Receive Date: 20210324
  Receipt Date: 20220405
  Transmission Date: 20220721
  Serious: Yes (Hospitalization)
  Sender: FDA-Public Use
  Company Number: JP-JNJFOC-20210338580

PATIENT
  Age: 5 Year
  Sex: Female
  Weight: 23 kg

DRUGS (6)
  1. OPSUMIT [Suspect]
     Active Substance: MACITENTAN
     Indication: Pulmonary arterial hypertension
     Route: 048
     Dates: start: 20201201, end: 20201215
  2. OPSUMIT [Suspect]
     Active Substance: MACITENTAN
     Route: 048
     Dates: start: 20201216, end: 20201219
  3. TRACLEER [Suspect]
     Active Substance: BOSENTAN
     Indication: Pulmonary arterial hypertension
     Dosage: 2 MG/KG 2 TIMES PER 1 DAY
     Route: 048
     Dates: start: 20200401, end: 20201130
  4. TRACLEER [Suspect]
     Active Substance: BOSENTAN
     Dosage: 2 MG/KG 2 TIMES PER 1 DAY
     Route: 048
     Dates: start: 20201220
  5. ADCIRCA [Concomitant]
     Active Substance: TADALAFIL
     Route: 048
  6. PREDNISOLONE [Concomitant]
     Active Substance: PREDNISOLONE
     Dosage: DOSE UNKNOWN
     Route: 065

REACTIONS (3)
  - Pulmonary arterial hypertension [Recovered/Resolved]
  - Product use issue [Unknown]
  - Off label use [Unknown]

NARRATIVE: CASE EVENT DATE: 20201201
